FAERS Safety Report 17007263 (Version 1)
Quarter: 2019Q4

REPORT INFORMATION
  Report Type: Spontaneous
  Country: BG (occurrence: BG)
  Receive Date: 20191108
  Receipt Date: 20191108
  Transmission Date: 20200122
  Serious: Yes (Other)
  Sender: FDA-Public Use
  Company Number: BG-SA-2019SA305111

PATIENT
  Age: 77 Year
  Sex: Male

DRUGS (2)
  1. FOLFIRI [Suspect]
     Active Substance: FLUOROURACIL\IRINOTECAN\LEUCOVORIN
     Indication: COLORECTAL CANCER
     Dosage: UNK
     Route: 065
     Dates: start: 201803, end: 2018
  2. ZALTRAP [Suspect]
     Active Substance: ZIV-AFLIBERCEPT
     Indication: COLORECTAL CANCER
     Dosage: UNK UNK, UNK
     Route: 065
     Dates: start: 201803, end: 2018

REACTIONS (5)
  - Skin toxicity [Unknown]
  - Neuropathy peripheral [Unknown]
  - Adverse drug reaction [Recovered/Resolved]
  - Disease progression [Unknown]
  - Dementia [Unknown]
